FAERS Safety Report 13613077 (Version 1)
Quarter: 2017Q2

REPORT INFORMATION
  Report Type: Spontaneous
  Country: GB (occurrence: GB)
  Receive Date: 20170605
  Receipt Date: 20170605
  Transmission Date: 20170830
  Serious: Yes (Disabling, Other)
  Sender: FDA-Public Use
  Company Number: GB-TEVA-773274ACC

PATIENT
  Age: 52 Year
  Sex: Female
  Weight: 76 kg

DRUGS (3)
  1. CIPLA EU LETROZOLE [Suspect]
     Active Substance: LETROZOLE
     Indication: BREAST CANCER STAGE II
     Route: 048
     Dates: start: 20141101, end: 20141107
  2. TEVA UK LETROZOLE [Suspect]
     Active Substance: LETROZOLE
     Indication: BREAST CANCER STAGE II
     Route: 048
     Dates: start: 20141101, end: 20141107
  3. ACTAVIS GROUP PTC LETROZOLE [Suspect]
     Active Substance: LETROZOLE
     Indication: BREAST CANCER STAGE II
     Route: 048
     Dates: start: 20141101, end: 20141107

REACTIONS (3)
  - Product substitution issue [Unknown]
  - Reaction to drug excipients [Unknown]
  - Arthralgia [Recovering/Resolving]

NARRATIVE: CASE EVENT DATE: 20141101
